FAERS Safety Report 13549428 (Version 2)
Quarter: 2017Q2

REPORT INFORMATION
  Report Type: Spontaneous
  Country: US (occurrence: US)
  Receive Date: 20170516
  Receipt Date: 20170523
  Transmission Date: 20170830
  Serious: Yes (Life-Threatening, Hospitalization, Other)
  Sender: FDA-Public Use
  Company Number: US-SUN PHARMACEUTICAL INDUSTRIES LTD-2017US-140506

PATIENT
  Age: 21 Year
  Sex: Female

DRUGS (1)
  1. VERAPAMIL [Suspect]
     Active Substance: VERAPAMIL HYDROCHLORIDE
     Indication: PRODUCT USED FOR UNKNOWN INDICATION
     Dosage: EXTENDED RELEASED INGESTION
     Route: 048

REACTIONS (3)
  - Intentional overdose [Recovered/Resolved]
  - Atrioventricular block complete [Recovered/Resolved]
  - Atrioventricular dissociation [Recovered/Resolved]
